FAERS Safety Report 4808040-5 (Version None)
Quarter: 2005Q4

REPORT INFORMATION
  Report Type: 
  Country: None (occurrence: None)
  Receive Date: 20051024
  Receipt Date: 20020516
  Transmission Date: 20060501
  Serious: Yes (Hospitalization, Disabling, Other)
  Sender: FDA-Public Use
  Company Number: US-MERCK-0205USA02094

PATIENT
  Age: 76 Year
  Sex: Female
  Weight: 68 kg

DRUGS (10)
  1. VIOXX [Suspect]
     Route: 048
     Dates: start: 20001228, end: 20010101
  2. SYNTHROID [Concomitant]
     Indication: THYROID DISORDER
     Route: 065
  3. NITRO-DUR [Concomitant]
     Route: 065
     Dates: start: 19920101
  4. NAPROSYN [Concomitant]
     Route: 065
     Dates: start: 19920420
  5. XALATAN [Concomitant]
     Indication: GLAUCOMA
     Route: 065
     Dates: start: 19990101
  6. COSOPT [Concomitant]
     Indication: GLAUCOMA
     Route: 065
     Dates: start: 19990101
  7. COZAAR [Concomitant]
     Indication: CARDIAC MURMUR
     Route: 065
     Dates: start: 20010301
  8. ASPIRIN [Concomitant]
     Route: 065
     Dates: start: 20020301
  9. PRILOSEC [Concomitant]
     Route: 065
  10. CELEBREX [Suspect]
     Route: 065

REACTIONS (28)
  - ABDOMINAL PAIN UPPER [None]
  - ANAEMIA [None]
  - ARTHROPATHY [None]
  - ATRIAL FIBRILLATION [None]
  - CARDIAC FAILURE CONGESTIVE [None]
  - CARDIAC MURMUR [None]
  - CARDIOMEGALY [None]
  - CHEST PAIN [None]
  - CHOLECYSTITIS ACUTE [None]
  - CHOLELITHIASIS [None]
  - CHRONIC OBSTRUCTIVE PULMONARY DISEASE [None]
  - FEELING ABNORMAL [None]
  - FEELING COLD [None]
  - GASTRIC HAEMORRHAGE [None]
  - GASTRITIS [None]
  - GASTRITIS ATROPHIC [None]
  - GASTROINTESTINAL HAEMORRHAGE [None]
  - HEADACHE [None]
  - HEPATIC CYST [None]
  - HOT FLUSH [None]
  - HYPERTENSION [None]
  - IRON DEFICIENCY ANAEMIA [None]
  - MELAENA [None]
  - MYOCARDIAL INFARCTION [None]
  - NEPHROLITHIASIS [None]
  - PULMONARY HYPERTENSION [None]
  - RENAL CYST [None]
  - VENTRICULAR HYPERTROPHY [None]
